FAERS Safety Report 6142012-6 (Version None)
Quarter: 2009Q2

REPORT INFORMATION
  Report Type: 
  Country: None (occurrence: None)
  Receive Date: 20090402
  Receipt Date: 20090325
  Transmission Date: 20091009
  Serious: Yes (Hospitalization)
  Sender: FDA-Public Use
  Company Number: US-ABBOTT-08P-163-0491242-00

PATIENT
  Sex: Female

DRUGS (3)
  1. HUMIRA [Suspect]
     Indication: CROHN'S DISEASE
     Route: 058
     Dates: start: 20081001, end: 20081101
  2. HUMIRA [Suspect]
     Route: 058
     Dates: start: 20081205
  3. HUMIRA [Suspect]

REACTIONS (1)
  - ANASTOMOTIC LEAK [None]
